FAERS Safety Report 5515061-6 (Version None)
Quarter: 2007Q4

REPORT INFORMATION
  Report Type: 
  Country: None (occurrence: None)
  Receive Date: 20071113
  Receipt Date: 20061208
  Transmission Date: 20080405
  Serious: No
  Sender: FDA-Public Use
  Company Number: A0630940A

PATIENT
  Age: 78 Year
  Sex: Female

DRUGS (1)
  1. COREG [Suspect]
     Route: 048
     Dates: start: 20051101

REACTIONS (2)
  - DIPLOPIA [None]
  - NAUSEA [None]
